FAERS Safety Report 22032184 (Version 1)
Quarter: 2023Q1

REPORT INFORMATION
  Report Type: Other
  Country: US (occurrence: None)
  Receive Date: 20230224
  Receipt Date: 20230224
  Transmission Date: 20230417
  Serious: Yes (Hospitalization)
  Sender: FDA-Public Use
  Company Number: US-ROCHE-3290134

PATIENT
  Age: 78 Year
  Sex: Male

DRUGS (1)
  1. GAZYVA [Suspect]
     Active Substance: OBINUTUZUMAB
     Indication: Chronic lymphocytic leukaemia
     Dosage: UNKNOWN
     Route: 042

REACTIONS (3)
  - COVID-19 [Unknown]
  - Pneumonia [Unknown]
  - Dehydration [Unknown]

NARRATIVE: CASE EVENT DATE: 20230215
